FAERS Safety Report 8536780-3 (Version None)
Quarter: 2012Q3

REPORT INFORMATION
  Report Type: 
  Country: None (occurrence: None)
  Receive Date: 20120725
  Receipt Date: 20120716
  Transmission Date: 20120928
  Serious: Yes (Hospitalization)
  Sender: FDA-Public Use
  Company Number: US-JNJFOC-20120518247

PATIENT
  Sex: Female
  Weight: 113.4 kg

DRUGS (12)
  1. STELARA [Suspect]
     Indication: PSORIASIS
     Dosage: APPROXIMATE TOTAL NUMBER OF INJECTIONS PATIENT RECEIVED WAS 6
     Route: 058
     Dates: start: 20101115, end: 20111115
  2. DIOVAN [Concomitant]
     Indication: PRODUCT USED FOR UNKNOWN INDICATION
     Dosage: 80/12.5 (UNITIS UNSPECIFIED)
     Route: 065
  3. XANAX [Concomitant]
     Indication: PRODUCT USED FOR UNKNOWN INDICATION
     Dosage: P.R.N
     Route: 048
  4. STELARA [Suspect]
     Indication: PSORIATIC ARTHROPATHY
     Dosage: APPROXIMATE TOTAL NUMBER OF INJECTIONS PATIENT RECEIVED WAS 6
     Route: 058
     Dates: start: 20101115, end: 20111115
  5. TRICOR [Concomitant]
     Route: 065
  6. CRESTOR [Concomitant]
     Indication: PRODUCT USED FOR UNKNOWN INDICATION
     Route: 048
  7. NORFLOXACIN [Concomitant]
     Route: 065
  8. AMBIEN [Concomitant]
     Indication: PRODUCT USED FOR UNKNOWN INDICATION
     Route: 048
  9. DARVOCET [Concomitant]
     Route: 065
  10. CELEBREX [Concomitant]
     Indication: PRODUCT USED FOR UNKNOWN INDICATION
     Dosage: AS NECESSARY
     Route: 048
  11. NEURONTIN [Concomitant]
     Indication: PRODUCT USED FOR UNKNOWN INDICATION
     Route: 048
  12. LEXAPRO [Concomitant]
     Indication: PRODUCT USED FOR UNKNOWN INDICATION
     Route: 048

REACTIONS (1)
  - HEPATIC NEOPLASM MALIGNANT [None]
